FAERS Safety Report 12881034 (Version 1)
Quarter: 2016Q4

REPORT INFORMATION
  Report Type: Spontaneous
  Country: US (occurrence: US)
  Receive Date: 20161025
  Receipt Date: 20161025
  Transmission Date: 20170207
  Serious: Yes (Other)
  Sender: FDA-Public Use
  Company Number: US-JNJFOC-20160910442

PATIENT
  Sex: Male

DRUGS (1)
  1. RISPERDAL [Suspect]
     Active Substance: RISPERIDONE
     Indication: PRODUCT USED FOR UNKNOWN INDICATION
     Route: 048
     Dates: start: 201003, end: 2012

REACTIONS (8)
  - Motor dysfunction [Unknown]
  - Dyssomnia [Unknown]
  - Anxiety [Unknown]
  - Mental impairment [Unknown]
  - Breast enlargement [Unknown]
  - Depression [Unknown]
  - Disturbance in attention [Unknown]
  - Gastrointestinal disorder [Unknown]
